FAERS Safety Report 12504341 (Version 1)
Quarter: 2016Q2

REPORT INFORMATION
  Report Type: Spontaneous
  Country: JP (occurrence: JP)
  Receive Date: 20160628
  Receipt Date: 20160628
  Transmission Date: 20160815
  Serious: Yes (Other)
  Sender: FDA-Public Use
  Company Number: JP-VALIDUS PHARMACEUTICALS LLC-JP-2016VAL002134

PATIENT

DRUGS (5)
  1. PARLODEL [Suspect]
     Active Substance: BROMOCRIPTINE MESYLATE
     Dosage: 2.5 MG, QD
     Route: 048
     Dates: start: 19940509, end: 19940515
  2. PARLODEL [Suspect]
     Active Substance: BROMOCRIPTINE MESYLATE
     Indication: HYPERPROLACTINAEMIA
     Dosage: 2.5 MG, QD
     Route: 048
     Dates: start: 19940418, end: 19940420
  3. PARLODEL [Suspect]
     Active Substance: BROMOCRIPTINE MESYLATE
     Dosage: 5 MG, QD
     Route: 048
     Dates: start: 19940516, end: 19940518
  4. PARLODEL [Suspect]
     Active Substance: BROMOCRIPTINE MESYLATE
     Dosage: 5 MG, QD
     Route: 048
     Dates: start: 19940421, end: 19940426
  5. PARLODEL [Suspect]
     Active Substance: BROMOCRIPTINE MESYLATE
     Dosage: 2.5 UNK, UNK
     Route: 048
     Dates: start: 19940519, end: 19940601

REACTIONS (3)
  - Delusion [Recovered/Resolved]
  - Suicide attempt [Recovered/Resolved]
  - Hallucination [Recovered/Resolved]

NARRATIVE: CASE EVENT DATE: 19940421
